FAERS Safety Report 17554250 (Version 1)
Quarter: 2020Q1

REPORT INFORMATION
  Report Type: Spontaneous
  Country: US (occurrence: US)
  Receive Date: 20200318
  Receipt Date: 20200318
  Transmission Date: 20200409
  Serious: Yes (Hospitalization)
  Sender: FDA-Public Use
  Company Number: US-EMCURE PHARMACEUTICALS LTD-2020-EPL-000270

PATIENT
  Age: 68 Year
  Sex: Male

DRUGS (9)
  1. ANTI-THYMOGLOBULIN [Concomitant]
     Active Substance: LAPINE T-LYMPHOCYTE IMMUNE GLOBULIN
     Indication: LUNG TRANSPLANT
     Dosage: UNK
  2. SULFAMETHOXAZOLE, TRIMETHOPRIM [Suspect]
     Active Substance: SULFAMETHOXAZOLE\TRIMETHOPRIM
     Indication: PROPHYLAXIS
     Dosage: DOUBLE?STRENGTH 3 TIMES WEEKLY
  3. MYCOPHENOLATE [Suspect]
     Active Substance: MYCOPHENOLIC ACID
     Indication: LUNG TRANSPLANT
     Dosage: 250 MILLIGRAM, BID DAILY
  4. PREDNISONE. [Suspect]
     Active Substance: PREDNISONE
     Dosage: INCREASED FROM 10 TO 30 MG DAILY
  5. PREDNISONE. [Suspect]
     Active Substance: PREDNISONE
     Indication: LUNG TRANSPLANT
     Dosage: 10 MILLIGRAM DAILY
  6. PREDNISONE. [Suspect]
     Active Substance: PREDNISONE
     Dosage: INCREASED TO 15 MG DAILY
  7. VALGANCICLOVIR. [Suspect]
     Active Substance: VALGANCICLOVIR
     Indication: PROPHYLAXIS
     Dosage: UNK
  8. AZITHROMYCIN ANHYDROUS. [Concomitant]
     Active Substance: AZITHROMYCIN ANHYDROUS
     Dosage: 250 MILLIGRAM 3 TIMES WEEKLY
  9. TACROLIMUS. [Suspect]
     Active Substance: TACROLIMUS
     Indication: LUNG TRANSPLANT
     Dosage: 3 MILLIGRAM, BID

REACTIONS (5)
  - Cryptococcosis [Unknown]
  - Pericardial effusion [Unknown]
  - Pericarditis [Unknown]
  - Leukopenia [Unknown]
  - Atrial fibrillation [Unknown]
